FAERS Safety Report 25003701 (Version 1)
Quarter: 2025Q1

REPORT INFORMATION
  Report Type: Spontaneous
  Country: AT (occurrence: AT)
  Receive Date: 20250224
  Receipt Date: 20250224
  Transmission Date: 20250408
  Serious: Yes (Other)
  Sender: BAYER HEALTHCARE PHARMACEUTICALS INC.
  Company Number: AT-BAYER-2025A021383

PATIENT
  Sex: Male

DRUGS (1)
  1. FINERENONE [Suspect]
     Active Substance: FINERENONE

REACTIONS (1)
  - Albuminuria [Not Recovered/Not Resolved]
